FAERS Safety Report 6016583-4 (Version None)
Quarter: 2008Q4

REPORT INFORMATION
  Report Type: 
  Country: None (occurrence: None)
  Receive Date: 20081222
  Receipt Date: 20081211
  Transmission Date: 20090506
  Serious: Yes (Other)
  Sender: FDA-Public Use
  Company Number: PHHY2008IE30472

PATIENT
  Sex: Male

DRUGS (5)
  1. CLOZARIL [Suspect]
     Indication: SCHIZOPHRENIA
     Dosage: UNK
     Dates: start: 20081104
  2. CLOZARIL [Suspect]
     Dosage: 150 MG DAILY
  3. ANTIBIOTICS [Concomitant]
  4. LANSOPRAZOLE [Concomitant]
     Indication: GASTRITIS
     Dosage: 30 MG DAILY
     Dates: start: 20081201
  5. KWELLS [Concomitant]
     Dosage: 1 TABLET DAILY
     Route: 048
     Dates: start: 20081201

REACTIONS (5)
  - C-REACTIVE PROTEIN INCREASED [None]
  - INFLUENZA LIKE ILLNESS [None]
  - MALAISE [None]
  - PYREXIA [None]
  - VIRAL INFECTION [None]
